FAERS Safety Report 9437855 (Version 1)
Quarter: 2013Q3

REPORT INFORMATION
  Report Type: Spontaneous
  Country: US (occurrence: US)
  Receive Date: 20130802
  Receipt Date: 20130802
  Transmission Date: 20140515
  Serious: Yes (Hospitalization)
  Sender: FDA-Public Use
  Company Number: US-BRISTOL-MYERS SQUIBB COMPANY-18856245

PATIENT
  Age: 80 Year
  Sex: Female
  Weight: 70.29 kg

DRUGS (5)
  1. WARFARIN SODIUM [Suspect]
     Indication: CEREBROVASCULAR ACCIDENT
     Dosage: 2007-FRB-2011;?24AUG2012-29DEC2012: 3 MG, 1 OR 2/D
     Dates: start: 2007, end: 20121229
  2. WARFARIN SODIUM [Suspect]
     Indication: ATRIAL FIBRILLATION
     Dosage: 2007-FRB-2011;?24AUG2012-29DEC2012: 3 MG, 1 OR 2/D
     Dates: start: 2007, end: 20121229
  3. DIGOXIN [Concomitant]
  4. CARDIZEM [Concomitant]
  5. PANTOPRAZOLE [Concomitant]

REACTIONS (2)
  - Ulcer haemorrhage [Unknown]
  - Anaemia [Unknown]
